FAERS Safety Report 20176514 (Version 1)
Quarter: 2021Q4

REPORT INFORMATION
  Report Type: Spontaneous
  Country: US (occurrence: None)
  Receive Date: 20211210
  Receipt Date: 20211210
  Transmission Date: 20220303
  Serious: Yes (Hospitalization)
  Sender: FDA-Public Use
  Company Number: None

PATIENT
  Age: 63 Year
  Sex: Male

DRUGS (5)
  1. NIVESTYM [Suspect]
     Active Substance: FILGRASTIM-AAFI
     Indication: Agranulocytosis
     Dosage: FREQUENCY : DAILY;?
     Route: 058
     Dates: start: 20210717
  2. OMEPRAZOLE [Concomitant]
     Active Substance: OMEPRAZOLE
  3. PROCHLORPER [Concomitant]
  4. LOSARTAN POTASSIUM [Concomitant]
     Active Substance: LOSARTAN POTASSIUM
  5. ROSUVASTATIN [Concomitant]
     Active Substance: ROSUVASTATIN

REACTIONS (1)
  - Surgery [None]

NARRATIVE: CASE EVENT DATE: 20211028
